FAERS Safety Report 8792809 (Version 2)
Quarter: 2012Q4

REPORT INFORMATION
  Report Type: 
  Country: DE (occurrence: DE)
  Receive Date: 20120918
  Receipt Date: 20121116
  Transmission Date: 20130627
  Serious: Yes (Other)
  Sender: FDA-Public Use
  Company Number: DE-GLAXOSMITHKLINE-D0077046A

PATIENT
  Age: 83 Year
  Sex: Male

DRUGS (3)
  1. REVOLADE [Suspect]
     Route: 048
  2. HYDROCHLOROTHIAZIDE [Suspect]
     Route: 065
  3. PREDNISOLON [Concomitant]
     Dosage: 5MG Per day
     Route: 065

REACTIONS (2)
  - Renal failure [Recovered/Resolved]
  - Polyuria [Recovered/Resolved]
